FAERS Safety Report 10175567 (Version 2)
Quarter: 2014Q2

REPORT INFORMATION
  Report Type: Spontaneous
  Country: CH (occurrence: CH)
  Receive Date: 20140516
  Receipt Date: 20140610
  Transmission Date: 20141212
  Serious: Yes (Death)
  Sender: FDA-Public Use
  Company Number: CH-ROCHE-1401384

PATIENT
  Age: 61 Year
  Sex: Female
  Weight: 51 kg

DRUGS (5)
  1. KADCYLA [Suspect]
     Indication: HER-2 POSITIVE BREAST CANCER
     Route: 042
     Dates: start: 20140312
  2. TOREM [Concomitant]
     Indication: PLEURAL EFFUSION
     Route: 065
     Dates: start: 2013
  3. ASPIRIN [Concomitant]
     Indication: CORONARY ARTERY DISEASE
     Route: 065
     Dates: start: 2011
  4. OXYCONTIN [Concomitant]
     Indication: PAIN
     Dosage: OXYCONTIN RETARD
     Route: 065
     Dates: start: 2013
  5. GLUCOPHAGE [Concomitant]
     Indication: DIABETES MELLITUS
     Route: 065
     Dates: start: 2013

REACTIONS (2)
  - Disease progression [Fatal]
  - Pneumonia [Fatal]
